FAERS Safety Report 18314678 (Version 2)
Quarter: 2020Q4

REPORT INFORMATION
  Report Type: Report from Study
  Country: None (occurrence: US)
  Receive Date: 20200925
  Receipt Date: 20201001
  Transmission Date: 20210113
  Serious: Yes (Hospitalization)
  Sender: FDA-Public Use
  Company Number: US-ABBVIE-20K-163-3580398-00

PATIENT
  Age: 81 Year
  Sex: Female

DRUGS (1)
  1. IMBRUVICA [Suspect]
     Active Substance: IBRUTINIB
     Indication: CHRONIC LYMPHOCYTIC LEUKAEMIA
     Route: 048
     Dates: start: 20200904

REACTIONS (9)
  - Diarrhoea [Recovered/Resolved]
  - Haemoglobin decreased [Unknown]
  - Dementia [Unknown]
  - Diverticulitis [Not Recovered/Not Resolved]
  - Rash macular [Unknown]
  - Platelet count decreased [Unknown]
  - Oral disorder [Recovered/Resolved]
  - Peripheral swelling [Unknown]
  - Arthralgia [Unknown]

NARRATIVE: CASE EVENT DATE: 202009
